FAERS Safety Report 22038751 (Version 1)
Quarter: 2023Q1

REPORT INFORMATION
  Report Type: Spontaneous
  Country: CA (occurrence: CA)
  Receive Date: 20230227
  Receipt Date: 20230227
  Transmission Date: 20230418
  Serious: Yes (Other)
  Sender: FDA-Public Use
  Company Number: CA-ASTELLAS-2023US006225

PATIENT
  Age: 63 Year
  Sex: Male

DRUGS (4)
  1. ISAVUCONAZOLE [Suspect]
     Active Substance: ISAVUCONAZOLE
     Indication: Brain abscess
     Dosage: 200 MG, EVERY 8 HOURS (FOR 6 DOSES)
     Route: 042
     Dates: start: 20230126
  2. ISAVUCONAZOLE [Suspect]
     Active Substance: ISAVUCONAZOLE
     Indication: Aspergillus infection
     Route: 042
     Dates: end: 20230208
  3. AMPHOTERICIN B [Concomitant]
     Active Substance: AMPHOTERICIN B
     Indication: Brain abscess
     Dosage: UNK UNK, UNKNOWN FREQ.
     Route: 065
     Dates: start: 20221222
  4. AMPHOTERICIN B [Concomitant]
     Active Substance: AMPHOTERICIN B
     Indication: Aspergillus infection

REACTIONS (3)
  - Aspergillus infection [Unknown]
  - General physical health deterioration [Unknown]
  - Drug level decreased [Unknown]

NARRATIVE: CASE EVENT DATE: 20230201
